FAERS Safety Report 7817616-2 (Version None)
Quarter: 2011Q4

REPORT INFORMATION
  Report Type: 
  Country: None (occurrence: None)
  Receive Date: 20111017
  Receipt Date: 20111013
  Transmission Date: 20120403
  Serious: Yes (Life-Threatening, Hospitalization)
  Sender: FDA-Public Use
  Company Number: PHHY2011FR81060

PATIENT
  Sex: Male

DRUGS (9)
  1. FENOFIBRATE [Concomitant]
     Dosage: 200 MG, UNK
  2. PERMIXON [Concomitant]
     Dosage: UNK UKN, UNK
  3. VOLTAREN [Suspect]
     Indication: ARTHRALGIA
     Dosage: UNK UKN, UNK
     Dates: start: 20101101, end: 20101125
  4. IRBESARTAN [Concomitant]
     Dosage: 150 MG, UNK
  5. LASIX [Concomitant]
     Dosage: 40 MG, UNK
  6. PREVISCAN [Suspect]
     Indication: THROMBOSIS PROPHYLAXIS
     Dosage: 20 MG, UNK
     Dates: end: 20101210
  7. ASPIRIN [Suspect]
     Indication: ISCHAEMIC HEART DISEASE PROPHYLAXIS
     Dosage: 75 MG, QD
  8. CORDARONE [Concomitant]
  9. ALFUZOSIN HCL [Concomitant]

REACTIONS (19)
  - CARDIAC DISORDER [None]
  - OSTEOARTHRITIS [None]
  - GASTROINTESTINAL ULCER [None]
  - GASTROINTESTINAL HAEMORRHAGE [None]
  - RESPIRATORY FAILURE [None]
  - CONDITION AGGRAVATED [None]
  - BLOOD CREATININE INCREASED [None]
  - GASTROINTESTINAL EROSION [None]
  - CARDIAC FAILURE [None]
  - HYPERTENSION [None]
  - GLOMERULAR FILTRATION RATE DECREASED [None]
  - RECTAL HAEMORRHAGE [None]
  - GASTRITIS HAEMORRHAGIC [None]
  - RENAL FAILURE [None]
  - HAEMATEMESIS [None]
  - MELAENA [None]
  - SHOCK HAEMORRHAGIC [None]
  - DUODENITIS [None]
  - HAEMOGLOBIN DECREASED [None]
